FAERS Safety Report 16186715 (Version 5)
Quarter: 2020Q1

REPORT INFORMATION
  Report Type: Spontaneous
  Country: US (occurrence: US)
  Receive Date: 20190411
  Receipt Date: 20200331
  Transmission Date: 20200409
  Serious: Yes (Hospitalization)
  Sender: FDA-Public Use
  Company Number: US-ACTELION-A-NJ2019-187281

PATIENT
  Age: 56 Year
  Sex: Female

DRUGS (5)
  1. UPTRAVI [Suspect]
     Active Substance: SELEXIPAG
     Indication: PULMONARY ARTERIAL HYPERTENSION
     Dosage: 1200 MCG, BID
     Route: 048
  2. LETAIRIS [Concomitant]
     Active Substance: AMBRISENTAN
  3. ATORVASTATIN [Concomitant]
     Active Substance: ATORVASTATIN
  4. GEMFIBROZIL. [Suspect]
     Active Substance: GEMFIBROZIL
     Indication: PRODUCT USED FOR UNKNOWN INDICATION
     Route: 048
  5. ADEMPAS [Concomitant]
     Active Substance: RIOCIGUAT

REACTIONS (13)
  - Myalgia [Unknown]
  - Feeling abnormal [Unknown]
  - Cardiac failure congestive [Unknown]
  - Pain [Unknown]
  - Vertigo [Unknown]
  - Vomiting [Unknown]
  - Oedema [Unknown]
  - Weight increased [Recovering/Resolving]
  - Sleep disorder [Unknown]
  - Nausea [Unknown]
  - Renal disorder [Unknown]
  - Gait disturbance [Unknown]
  - Dizziness postural [Unknown]

NARRATIVE: CASE EVENT DATE: 202003
